FAERS Safety Report 5754273-3 (Version None)
Quarter: 2008Q2

REPORT INFORMATION
  Report Type: 
  Country: None (occurrence: None)
  Receive Date: 20080530
  Receipt Date: 20080520
  Transmission Date: 20081010
  Serious: Yes (Hospitalization)
  Sender: FDA-Public Use
  Company Number: US-AMGEN-US278010

PATIENT
  Sex: Female
  Weight: 76 kg

DRUGS (10)
  1. ETANERCEPT [Suspect]
     Indication: RHEUMATOID ARTHRITIS
     Route: 058
     Dates: start: 19970825
  2. ASPIRIN [Concomitant]
     Route: 065
  3. CALCIUM CITRATE [Concomitant]
     Route: 065
  4. ESTRADIOL [Concomitant]
     Route: 065
  5. EVOXAC [Concomitant]
     Route: 065
  6. VITAMIN CAP [Concomitant]
     Route: 048
  7. PRILOSEC [Concomitant]
     Route: 048
  8. SYNTHROID [Concomitant]
     Route: 048
  9. TOPROL-XL [Concomitant]
     Route: 048
  10. ZANTAC [Concomitant]
     Route: 048

REACTIONS (2)
  - BACK PAIN [None]
  - DYSPNOEA [None]
